FAERS Safety Report 5525314-3 (Version None)
Quarter: 2007Q4

REPORT INFORMATION
  Report Type: 
  Country: None (occurrence: None)
  Receive Date: 20071120
  Receipt Date: 20071120
  Transmission Date: 20080405
  Serious: No
  Sender: FDA-Public Use
  Company Number: None

PATIENT
  Sex: Male
  Weight: 105.4 kg

DRUGS (2)
  1. CYTARABINE [Suspect]
     Dosage: 20700 MG
     Dates: end: 20040313
  2. G-CSF (FILGRASTIM, AMGEN) [Suspect]
     Dosage: 4320 MCG
     Dates: end: 20040330

REACTIONS (1)
  - THROMBOCYTOPENIA [None]
